FAERS Safety Report 25966226 (Version 1)
Quarter: 2025Q4

REPORT INFORMATION
  Report Type: Report from Study
  Country: US (occurrence: US)
  Receive Date: 20251028
  Receipt Date: 20251028
  Transmission Date: 20260117
  Serious: Yes (Hospitalization, Other)
  Sender: ALEXION PHARMACEUTICALS
  Company Number: US-AstraZeneca-CH-00978448A

PATIENT
  Sex: Male

DRUGS (3)
  1. OSIMERTINIB [Suspect]
     Active Substance: OSIMERTINIB
     Dosage: 80 MILLIGRAM, QD
  2. AMIODARONE [Concomitant]
     Active Substance: AMIODARONE
     Route: 065
  3. Constipation [Concomitant]
     Route: 065

REACTIONS (7)
  - Cardiac disorder [Unknown]
  - Neoplasm malignant [Unknown]
  - Constipation [Unknown]
  - Diarrhoea [Unknown]
  - Hair texture abnormal [Unknown]
  - Dry skin [Unknown]
  - Onychoclasis [Unknown]
